FAERS Safety Report 7352224-1 (Version None)
Quarter: 2011Q1

REPORT INFORMATION
  Report Type: 
  Country: None (occurrence: None)
  Receive Date: 20110304
  Receipt Date: 20110224
  Transmission Date: 20110831
  Serious: Yes (Death)
  Sender: FDA-Public Use
  Company Number: 1000019084

PATIENT
  Sex: Male
  Weight: 0.54 kg

DRUGS (4)
  1. ESCITALOPRAM OXALATE [Suspect]
     Dosage: 20 MG (10 MG,2 IN 1 D), TRANSPLACENTAL
     Route: 064
     Dates: start: 20100111, end: 20100606
  2. LORAZEPAM [Suspect]
     Dosage: TRANSPLACENTAL
     Route: 064
     Dates: end: 20100201
  3. ZYPREXA [Suspect]
     Dosage: 7.5 MG (7.5 MG,1 IN 1 D),TRANSPLACENTAL
     Route: 064
     Dates: end: 20100606
  4. ABILIFY [Suspect]
     Dosage: (15 MG), TRANSPLACENTAL
     Route: 064
     Dates: start: 20100111, end: 20100312

REACTIONS (4)
  - PREMATURE RUPTURE OF MEMBRANES [None]
  - MATERNAL DRUGS AFFECTING FOETUS [None]
  - ABORTION [None]
  - PREMATURE BABY [None]
